FAERS Safety Report 9003461 (Version 1)
Quarter: 2013Q1

REPORT INFORMATION
  Report Type: Spontaneous
  Country: JP (occurrence: JP)
  Receive Date: 20130108
  Receipt Date: 20130108
  Transmission Date: 20140127
  Serious: Yes (Death, Hospitalization, Other)
  Sender: FDA-Public Use
  Company Number: PHHY2013JP001462

PATIENT
  Age: 67 Year
  Sex: Male
  Weight: 69 kg

DRUGS (14)
  1. DOCETAXEL [Suspect]
     Indication: LUNG ADENOCARCINOMA METASTATIC
     Dosage: 104 MG, QD
     Route: 041
     Dates: start: 20110928, end: 20110928
  2. DOCETAXEL [Suspect]
     Dosage: 87 MG, QD
     Route: 041
     Dates: start: 20111020, end: 20111020
  3. AVASTIN [Suspect]
     Indication: LUNG ADENOCARCINOMA METASTATIC
     Dosage: 15 MG/KG, TIW
     Route: 041
     Dates: start: 20110421, end: 20110825
  4. AVASTIN [Suspect]
     Dosage: 15 MG/KG, TIW
     Route: 041
     Dates: start: 20110928, end: 20111020
  5. CARBOPLATIN [Concomitant]
     Indication: LUNG ADENOCARCINOMA METASTATIC
     Route: 041
     Dates: start: 20110421, end: 20110704
  6. PEMETREXED [Concomitant]
     Indication: LUNG ADENOCARCINOMA METASTATIC
     Route: 041
     Dates: start: 20110421, end: 20110704
  7. GLICLAZIDE [Concomitant]
     Indication: DIABETES MELLITUS
     Dosage: 40 MG, QD
     Route: 048
     Dates: start: 2008
  8. METFORMIN [Concomitant]
     Indication: DIABETES MELLITUS
     Dosage: 250 MG, BID
     Route: 048
     Dates: start: 2008
  9. ALLOPURINOL [Concomitant]
     Indication: HYPERURICAEMIA
     Dosage: 100 MG, QD
     Route: 048
  10. DEPAS [Concomitant]
     Indication: INSOMNIA
     Dosage: 0.5 MG, QD
     Route: 048
  11. LOXONIN [Concomitant]
     Indication: CANCER PAIN
     Dosage: 60 UNK, TID
     Route: 048
     Dates: start: 201104
  12. MUCOSTA [Concomitant]
     Indication: GASTRITIS PROPHYLAXIS
     Dosage: 100 MG, TID
     Route: 048
     Dates: start: 201104
  13. CARBOCISTEINE [Concomitant]
     Indication: PRODUCTIVE COUGH
     Dosage: 250 MG, TID
     Route: 048
     Dates: start: 201104
  14. POLAPREZINC [Concomitant]
     Indication: DYSGEUSIA
     Dosage: 75 MG, BID
     Route: 048
     Dates: start: 201104

REACTIONS (11)
  - Interstitial lung disease [Fatal]
  - Acute respiratory distress syndrome [Fatal]
  - Intestinal perforation [Fatal]
  - Respiratory distress [Fatal]
  - Infection [Unknown]
  - Toothache [Unknown]
  - Pain in extremity [Unknown]
  - Depressed level of consciousness [Unknown]
  - Malaise [Unknown]
  - Musculoskeletal pain [Unknown]
  - Abdominal pain [Unknown]
